FAERS Safety Report 21248134 (Version 2)
Quarter: 2023Q1

REPORT INFORMATION
  Report Type: Report from Study
  Country: AU (occurrence: AU)
  Receive Date: 20220824
  Receipt Date: 20230220
  Transmission Date: 20230418
  Serious: Yes (Hospitalization, Other)
  Sender: FDA-Public Use
  Company Number: AU-NOVARTISPH-NVSC2022AU025466

PATIENT
  Sex: Female

DRUGS (2)
  1. KESIMPTA [Suspect]
     Active Substance: OFATUMUMAB
     Indication: Relapsing-remitting multiple sclerosis
     Dosage: 20 MG, QMO
     Route: 058
     Dates: start: 20220204
  2. KESIMPTA [Suspect]
     Active Substance: OFATUMUMAB
     Dosage: 20 MG, QMO (OTHER)
     Route: 058

REACTIONS (13)
  - Oral candidiasis [Unknown]
  - Sinus tachycardia [Unknown]
  - Multiple sclerosis relapse [Unknown]
  - Influenza like illness [Unknown]
  - Headache [Unknown]
  - Malaise [Unknown]
  - Muscle spasms [Unknown]
  - Fatigue [Unknown]
  - Movement disorder [Unknown]
  - Back pain [Unknown]
  - COVID-19 [Unknown]
  - Feeling abnormal [Unknown]
  - Pharyngitis [Recovered/Resolved]
